FAERS Safety Report 9790189 (Version 2)
Quarter: 2013Q4

REPORT INFORMATION
  Report Type: Report from Study
  Country: AU (occurrence: AU)
  Receive Date: 20131231
  Receipt Date: 20131231
  Transmission Date: 20140711
  Serious: Yes (Other)
  Sender: FDA-Public Use
  Company Number: AU-JNJFOC-20120809837

PATIENT
  Age: 36 Year
  Sex: Female

DRUGS (6)
  1. RISPERIDONE [Suspect]
     Indication: PSYCHOTIC DISORDER
     Dosage: AT 21/40 WEEKS
     Route: 048
     Dates: start: 20120622
  2. QUETIAPINE [Suspect]
     Indication: PSYCHOTIC DISORDER
     Dosage: STARTED PRE-PREGNANCY;??50-200 MG DAILY
     Route: 048
  3. FLUOXETINE [Suspect]
     Indication: ANTIDEPRESSANT THERAPY
     Dosage: STOPPED AT 20 WEEKS OF GESTATION
     Route: 048
  4. BLACKMORES PREGNANCY + BREAST-FEEDING FORMULA [Concomitant]
     Indication: VITAMIN SUPPLEMENTATION
     Route: 048
  5. FOLIC ACID [Concomitant]
     Indication: PROPHYLAXIS OF NEURAL TUBE DEFECT
     Route: 048
  6. VITAMIN B12 [Concomitant]
     Indication: VITAMIN SUPPLEMENTATION
     Dosage: 1-2 TABLETS DAILY
     Route: 048

REACTIONS (2)
  - Gestational diabetes [Recovered/Resolved]
  - Exposure during pregnancy [Recovered/Resolved]
